FAERS Safety Report 16370874 (Version 1)
Quarter: 2019Q2

REPORT INFORMATION
  Report Type: Spontaneous
  Country: CA (occurrence: CA)
  Receive Date: 20190530
  Receipt Date: 20190530
  Transmission Date: 20190711
  Serious: Yes (Other)
  Sender: FDA-Public Use
  Company Number: CA-TEVA-2018-CA-926594

PATIENT
  Age: 45 Year
  Sex: Female

DRUGS (6)
  1. DULOXETINE. [Suspect]
     Active Substance: DULOXETINE
     Route: 048
  2. FENTANYL. [Concomitant]
     Active Substance: FENTANYL
  3. QUETIAPINE. [Concomitant]
     Active Substance: QUETIAPINE
  4. HYDROMORPHONE [Concomitant]
     Active Substance: HYDROMORPHONE
  5. ALMOTRIPTAN MALATE. [Suspect]
     Active Substance: ALMOTRIPTAN MALATE
     Route: 048
  6. AXERT [Suspect]
     Active Substance: ALMOTRIPTAN MALATE
     Route: 048

REACTIONS (3)
  - Muscle spasms [Unknown]
  - Muscle tightness [Unknown]
  - Myoclonus [Unknown]
